FAERS Safety Report 7277738-4 (Version None)
Quarter: 2011Q1

REPORT INFORMATION
  Report Type: 
  Country: None (occurrence: None)
  Receive Date: 20110207
  Receipt Date: 20110131
  Transmission Date: 20110831
  Serious: No
  Sender: FDA-Public Use
  Company Number: US-PFIZER INC-2010138807

PATIENT
  Sex: Male
  Weight: 79.4 kg

DRUGS (5)
  1. CELEBREX [Suspect]
     Indication: ARTHROPATHY
     Dosage: 200 MG, 1X/DAY
     Route: 048
     Dates: start: 20101025, end: 20101101
  2. MOTRIN [Concomitant]
     Dosage: UNK
  3. PARACETAMOL/ CAFFEINE [Concomitant]
     Dosage: UNK
  4. INSULIN [Concomitant]
     Dosage: UNK
  5. ACETAMINOPHEN AND OXYCODONE HCL [Concomitant]
     Indication: PAIN
     Dosage: UNK

REACTIONS (3)
  - BLISTER [None]
  - URTICARIA [None]
  - RASH PRURITIC [None]
